FAERS Safety Report 9797445 (Version 2)
Quarter: 2014Q1

REPORT INFORMATION
  Report Type: Spontaneous
  Country: US (occurrence: None)
  Receive Date: 20131231
  Receipt Date: 20140107
  Transmission Date: 20141002
  Serious: Yes (Other)
  Sender: FDA-Public Use
  Company Number: AUR-APL-2013-10699

PATIENT
  Age: 0 Day
  Sex: 0
  Weight: 1.9 kg

DRUGS (4)
  1. LAMIVUDINE [Suspect]
     Indication: PRODUCT USED FOR UNKNOWN INDICATION
     Route: 064
     Dates: start: 20121108
  2. LOPINAVIR+RITONAVIR [Suspect]
     Indication: PRODUCT USED FOR UNKNOWN INDICATION
     Route: 064
     Dates: start: 20130531
  3. TENOFOVIR [Suspect]
     Indication: PRODUCT USED FOR UNKNOWN INDICATION
     Route: 064
     Dates: start: 20121108
  4. ETRAVIRINE [Suspect]
     Indication: PRODUCT USED FOR UNKNOWN INDICATION
     Dosage: (400 MG,1 D)
     Route: 064
     Dates: start: 20121108, end: 20130531

REACTIONS (3)
  - Premature baby [None]
  - Maternal drugs affecting foetus [None]
  - Neonatal respiratory distress syndrome [None]
